FAERS Safety Report 5372048-4 (Version None)
Quarter: 2007Q2

REPORT INFORMATION
  Report Type: 
  Country: None (occurrence: None)
  Receive Date: 20070625
  Receipt Date: 20070611
  Transmission Date: 20071010
  Serious: Yes (Death)
  Sender: FDA-Public Use
  Company Number: 16820

PATIENT
  Age: 52 Year
  Sex: Female

DRUGS (15)
  1. ETOPOSIDE [Suspect]
     Indication: HODGKIN'S DISEASE
  2. DOXORUBICIN HCL [Suspect]
     Indication: HODGKIN'S DISEASE
  3. BLEOMYCIN [Suspect]
     Indication: HODGKIN'S DISEASE
  4. VINCRISTINE [Suspect]
     Indication: HODGKIN'S DISEASE
  5. CYCLOPHOSPHAMIDE [Suspect]
     Indication: HODGKIN'S DISEASE
  6. PROCARBAZINE [Suspect]
     Indication: HODGKIN'S DISEASE
  7. PREDNISONE TAB [Suspect]
     Indication: HODGKIN'S DISEASE
  8. DARBEPOETIN ALFA [Suspect]
     Indication: HODGKIN'S DISEASE
     Dosage: 500 MICROGRAM Q3W SC
     Route: 058
     Dates: start: 20070118
  9. FILGRASTIM [Concomitant]
  10. GRANISETRON [Concomitant]
  11. CALCIUM CHLORIDE DIHYDRATE [Concomitant]
  12. FOLIC ACID [Concomitant]
  13. ALLOPURINOL [Concomitant]
  14. FLUCONAZOLE [Concomitant]
  15. BACTRIM /00086101/ MFR: NOT SPECIFIED [Concomitant]

REACTIONS (1)
  - CARDIAC FAILURE [None]
